FAERS Safety Report 6247629-6 (Version None)
Quarter: 2009Q2

REPORT INFORMATION
  Report Type: 
  Country: None (occurrence: None)
  Receive Date: 20090626
  Receipt Date: 20090622
  Transmission Date: 20091009
  Serious: Yes (Hospitalization)
  Sender: FDA-Public Use
  Company Number: JP-BRISTOL-MYERS SQUIBB COMPANY-14678213

PATIENT
  Age: 10 Month
  Sex: Male

DRUGS (4)
  1. VEPESID [Suspect]
     Indication: ACUTE LEUKAEMIA
     Route: 041
  2. CYTARABINE [Suspect]
  3. NOVANTRONE [Suspect]
  4. IDAMYCIN [Suspect]

REACTIONS (1)
  - ENDOCARDITIS [None]
